FAERS Safety Report 7534625-1 (Version None)
Quarter: 2011Q2

REPORT INFORMATION
  Report Type: 
  Country: None (occurrence: None)
  Receive Date: 20110609
  Receipt Date: 20101025
  Transmission Date: 20111010
  Serious: Yes (Death, Other)
  Sender: FDA-Public Use
  Company Number: PHEH2007US16421

PATIENT
  Sex: Male
  Weight: 106.39 kg

DRUGS (27)
  1. CALCIUM CARBONATE [Concomitant]
     Dosage: 500 MG, PRN
     Route: 048
     Dates: start: 20051011
  2. EXJADE [Suspect]
     Indication: IRON OVERLOAD
  3. AMBIEN [Concomitant]
     Dosage: 5 MG, QHS
     Route: 048
     Dates: start: 20060523
  4. LACTULOSE [Concomitant]
     Dosage: 75 MG, QD
     Route: 048
     Dates: start: 20051011, end: 20060523
  5. LEVAQUIN [Concomitant]
  6. RENAGEL [Concomitant]
     Dosage: 800 MG, UNK
     Route: 048
     Dates: start: 20051110
  7. ZANTAC [Concomitant]
     Dosage: 75 MG, BID
     Dates: start: 20051115, end: 20051208
  8. MICRO-K [Concomitant]
     Dosage: 1 CUP, UNK
     Route: 048
  9. PREDNISONE [Concomitant]
     Dosage: 10 MG, UNK
     Route: 048
     Dates: start: 20051108, end: 20060127
  10. NORCO [Concomitant]
     Dosage: 325 MG- 5MG PRN
     Dates: start: 20051011
  11. PHOSLO [Concomitant]
     Dosage: 667 MG, BID
     Route: 048
  12. AUGMENTIN '125' [Concomitant]
     Dosage: 01 DF, BID
     Route: 048
     Dates: start: 20060328, end: 20060407
  13. LABETALOL HYDROCHLORIDE [Concomitant]
     Dosage: 150 MG, QD
     Route: 048
  14. VIDAZA [Concomitant]
  15. ACETAMINOPHEN AND HYDROCODONE BITARTRATE [Concomitant]
     Dosage: 2 DF, EVERY 4 TO 6 HOURS
  16. COREG [Concomitant]
     Dosage: 25 MG, BID
     Route: 048
     Dates: start: 20060523
  17. CYCLOSPORINE [Concomitant]
     Dosage: 100 MG, BID
     Route: 048
     Dates: start: 20051108, end: 20060127
  18. PREVACID [Concomitant]
     Dosage: 30 MG, UNK
     Route: 048
     Dates: start: 20051108, end: 20060127
  19. ALLOPURINOL [Concomitant]
  20. ZOFRAN [Concomitant]
  21. COZAAR [Concomitant]
  22. EXJADE [Suspect]
     Indication: MYELODYSPLASTIC SYNDROME
     Dosage: 2 G, QD
     Route: 048
     Dates: start: 20051214
  23. ALTACE [Concomitant]
     Dosage: 10 MG, QD
     Route: 048
     Dates: start: 20051110
  24. NEPHROCAPS [Concomitant]
     Dosage: 1 DF, QD
     Route: 048
  25. SENNA SYRUP [Concomitant]
     Dosage: 50 MG- 187 MG PRN
     Route: 048
  26. TYLENOL-500 [Concomitant]
     Dosage: 650 MG, UNK
  27. THALIDOMIDE [Concomitant]
     Dosage: 50 MG, UNK
     Dates: start: 20060418

REACTIONS (13)
  - FEBRILE NEUTROPENIA [None]
  - THROMBOCYTOPENIA [None]
  - CARDIO-RESPIRATORY ARREST [None]
  - GASTROINTESTINAL HAEMORRHAGE [None]
  - MELAENA [None]
  - CARDIOMEGALY [None]
  - EPISTAXIS [None]
  - MYELODYSPLASTIC SYNDROME [None]
  - DISEASE PROGRESSION [None]
  - PYOTHORAX [None]
  - CHEST PAIN [None]
  - LUNG INFILTRATION [None]
  - HYPOXIA [None]
